FAERS Safety Report 8189812-9 (Version None)
Quarter: 2012Q1

REPORT INFORMATION
  Report Type: 
  Country: None (occurrence: None)
  Receive Date: 20120307
  Receipt Date: 20110719
  Transmission Date: 20120608
  Serious: No
  Sender: FDA-Public Use
  Company Number: US-GLAXOSMITHKLINE-A0937350A

PATIENT
  Age: 48 Year
  Sex: Female

DRUGS (2)
  1. ALLERGEN [Concomitant]
  2. REQUIP [Suspect]
     Indication: RESTLESS LEGS SYNDROME
     Dosage: 2MG PER DAY
     Route: 048
     Dates: start: 20110718

REACTIONS (2)
  - INSOMNIA [None]
  - PAIN IN EXTREMITY [None]
